FAERS Safety Report 10664550 (Version 1)
Quarter: 2014Q4

REPORT INFORMATION
  Report Type: Spontaneous
  Country: US (occurrence: None)
  Receive Date: 20141208
  Receipt Date: 20141208
  Transmission Date: 20150529
  Serious: No
  Sender: FDA-Public Use
  Company Number: 2014TUS006633

PATIENT
  Age: 66 Year
  Sex: Female
  Weight: 81.6 kg

DRUGS (13)
  1. DULCOLAX(BISACODYL) [Concomitant]
  2. CITRUCEL(METHYCELLULOSE) [Concomitant]
  3. BRINTELLIX [Suspect]
     Active Substance: VORTIOXETINE HYDROBROMIDE
     Indication: DEPRESSION
     Route: 048
     Dates: start: 20140326, end: 20140408
  4. MIRALAX(MACROGOL) [Concomitant]
  5. SYNTHROID(LEVOTHYROXINE SODIUM) [Concomitant]
  6. NEXIUM (ESOMEPRAZOLE MANGESIUM) [Concomitant]
  7. TOPROL XL(METOPROLOL SUCCINATE) [Concomitant]
  8. TRICOR(ADENOSINE) [Concomitant]
  9. BENICAR HCT(HYDROCHLOROTHIAZIDE OLMESARTAN MEDOXOMIL) [Concomitant]
  10. VAGIFEM(ESTRADIOL) [Concomitant]
  11. FLONASE(FLUTICASONE PROPIONATE) [Concomitant]
  12. CRESTOR(ROSUVASTATIN CALCIUM) [Concomitant]
  13. ASTELIN(AZELASTINE HYDROCHLORIDE) [Concomitant]

REACTIONS (8)
  - Fatigue [None]
  - Constipation [None]
  - Biliary tract disorder [None]
  - Throat tightness [None]
  - Weight increased [None]
  - Nausea [None]
  - Blood pressure abnormal [None]
  - Nervousness [None]
